FAERS Safety Report 10600811 (Version 1)
Quarter: 2014Q4

REPORT INFORMATION
  Report Type: Spontaneous
  Country: US (occurrence: None)
  Receive Date: 20141121
  Receipt Date: 20141121
  Transmission Date: 20150529
  Serious: Yes (Life-Threatening, Hospitalization, Disabling)
  Sender: FDA-Public Use
  Company Number: None

PATIENT
  Age: 31 Year
  Sex: Female
  Weight: 68.04 kg

DRUGS (1)
  1. LIDOCAINE. [Suspect]
     Active Substance: LIDOCAINE
     Indication: LOCAL ANAESTHESIA
     Dosage: 5CC2%?1 INJ?PARACERVICAL
     Dates: start: 20141003, end: 20141010

REACTIONS (3)
  - Seizure [None]
  - Cardio-respiratory arrest [None]
  - Anoxia [None]

NARRATIVE: CASE EVENT DATE: 20141010
